FAERS Safety Report 13232244 (Version 1)
Quarter: 2017Q1

REPORT INFORMATION
  Report Type: Spontaneous
  Country: CN (occurrence: CN)
  Receive Date: 20170214
  Receipt Date: 20170214
  Transmission Date: 20170428
  Serious: Yes (Hospitalization, Other)
  Sender: FDA-Public Use
  Company Number: CN-BAYER-2017-026227

PATIENT
  Age: 74 Year
  Sex: Male

DRUGS (6)
  1. NOVONORM [Suspect]
     Active Substance: REPAGLINIDE
     Indication: BLOOD GLUCOSE ABNORMAL
     Dosage: 1 MG, TID
     Route: 048
     Dates: start: 20160416, end: 20160914
  2. ALPROSTADIL. [Concomitant]
     Active Substance: ALPROSTADIL
     Indication: CARDIOVASCULAR DISORDER
     Dosage: UNK
  3. VINPOCETINE [Concomitant]
     Active Substance: VINPOCETINE
     Indication: CEREBROVASCULAR DISORDER
     Dosage: UNK
  4. GLUCOBAY [Suspect]
     Active Substance: ACARBOSE
     Indication: BLOOD GLUCOSE ABNORMAL
     Dosage: 50 MG, TID
     Route: 048
     Dates: start: 20130416, end: 20130914
  5. CILOSTAZOL. [Concomitant]
     Active Substance: CILOSTAZOL
     Indication: CEREBROVASCULAR DISORDER
     Dosage: UNK
  6. METHYLCOBALAMINE W/ALPHA LACTIC ACID [Concomitant]
     Indication: NUTRITIONAL SUPPLEMENTATION
     Dosage: UNK

REACTIONS (1)
  - Cerebral infarction [Recovering/Resolving]

NARRATIVE: CASE EVENT DATE: 20161013
